FAERS Safety Report 8590457-7 (Version None)
Quarter: 2012Q3

REPORT INFORMATION
  Report Type: 
  Country: None (occurrence: None)
  Receive Date: 20120813
  Receipt Date: 20120810
  Transmission Date: 20120928
  Serious: Yes (Other)
  Sender: FDA-Public Use
  Company Number: US-PFIZER INC-2011306847

PATIENT
  Age: 51 Year
  Sex: Male
  Weight: 74.83 kg

DRUGS (4)
  1. GEODON [Suspect]
     Dosage: 80 MG, 2X/DAY
     Route: 048
     Dates: start: 20111201
  2. PAXIL [Concomitant]
     Indication: DEPRESSION
     Dosage: UNK
     Dates: start: 19960101
  3. GEODON [Suspect]
     Indication: BIPOLAR DISORDER
     Dosage: 20 MG, 1X/DAY
     Route: 048
     Dates: start: 20111212, end: 20111201
  4. LITHIUM [Concomitant]
     Indication: BIPOLAR DISORDER
     Dosage: UNK
     Dates: start: 20060101

REACTIONS (10)
  - CRYING [None]
  - PHYSICAL PRODUCT LABEL ISSUE [None]
  - ANXIETY [None]
  - PARAESTHESIA [None]
  - SPEECH DISORDER [None]
  - DEPRESSION [None]
  - PANIC ATTACK [None]
  - FEELING ABNORMAL [None]
  - FEELING JITTERY [None]
  - CIRCUMSTANCE OR INFORMATION CAPABLE OF LEADING TO MEDICATION ERROR [None]
